FAERS Safety Report 17951263 (Version 1)
Quarter: 2020Q2

REPORT INFORMATION
  Report Type: Spontaneous
  Country: CL (occurrence: CL)
  Receive Date: 20200626
  Receipt Date: 20200626
  Transmission Date: 20200714
  Serious: Yes (Other)
  Sender: FDA-Public Use
  Company Number: CL-MYLANLABS-2020M1059215

PATIENT
  Age: 23 Year
  Sex: Female

DRUGS (10)
  1. LEPONEX [Suspect]
     Active Substance: CLOZAPINE
     Indication: IRRITABILITY
     Dosage: 25 MILLIGRAM, QD
     Route: 048
     Dates: start: 20180822
  2. LEPONEX [Suspect]
     Active Substance: CLOZAPINE
     Dosage: 25 MILLIGRAM UNTIL TODAY
     Dates: start: 2020
  3. RAVOTRIL [Concomitant]
     Active Substance: CLONAZEPAM
     Indication: TIC
     Dosage: 0.5 MG, QD (2 MONTHS AGO)
     Route: 048
  4. LEPONEX [Suspect]
     Active Substance: CLOZAPINE
     Dosage: 150 MILLIGRAM (DECREASING LEPONEX DOSAGE OF 150 MG)
     Dates: start: 201912
  5. LEPONEX [Suspect]
     Active Substance: CLOZAPINE
     Indication: AGGRESSION
     Dosage: 150 MILLIGRAM
  6. LAMICTAL [Concomitant]
     Active Substance: LAMOTRIGINE
     Indication: EPILEPSY
     Dosage: 500 MILLIGRAM, QD
     Route: 048
  7. CATAPRESAN                         /00171101/ [Concomitant]
     Active Substance: CLONIDINE
     Indication: BEHAVIOUR DISORDER
     Dosage: 200 MILLIGRAM, QD
     Route: 048
  8. RAVOTRIL [Concomitant]
     Active Substance: CLONAZEPAM
     Indication: SLEEP DISORDER
  9. EUTIROX [Concomitant]
     Active Substance: LEVOTHYROXINE SODIUM
     Indication: HYPOTHYROIDISM
     Dosage: 100 MCG, QD (STARTED 15 YEARS AGO)
     Route: 048
  10. PRESTAT [Concomitant]
     Indication: PAIN
     Dosage: 150 MG, QD (STARTED 3 YEARS AGO)
     Route: 048

REACTIONS (3)
  - Psychiatric decompensation [Recovered/Resolved]
  - Off label use [Not Recovered/Not Resolved]
  - Seizure [Not Recovered/Not Resolved]

NARRATIVE: CASE EVENT DATE: 2018
